FAERS Safety Report 16069088 (Version 1)
Quarter: 2019Q1

REPORT INFORMATION
  Report Type: Spontaneous
  Country: US (occurrence: US)
  Receive Date: 20190313
  Receipt Date: 20190313
  Transmission Date: 20190418
  Serious: No
  Sender: FDA-Public Use
  Company Number: PHEH2019US009735

PATIENT
  Age: 75 Year
  Sex: Female
  Weight: 56.7 kg

DRUGS (3)
  1. OXAPROZIN SANDOZ [Suspect]
     Active Substance: OXAPROZIN
     Indication: RHEUMATOID ARTHRITIS
     Dosage: 600 MG, QD (2 EVERY MORNING)
     Route: 065
     Dates: start: 20181124, end: 20181126
  2. PLAQUENIL [Concomitant]
     Active Substance: HYDROXYCHLOROQUINE SULFATE
     Indication: RHEUMATOID ARTHRITIS
     Dosage: 200 MG, BID
     Route: 065
     Dates: start: 1988
  3. DAYPRO [Suspect]
     Active Substance: OXAPROZIN
     Dosage: 1200 MG, QD (2 EVERY MORNING)
     Route: 065
     Dates: start: 1988

REACTIONS (4)
  - Drug ineffective [Unknown]
  - Influenza like illness [Unknown]
  - Arthralgia [Unknown]
  - Product substitution issue [None]

NARRATIVE: CASE EVENT DATE: 20181124
